FAERS Safety Report 8194925-1 (Version None)
Quarter: 2012Q1

REPORT INFORMATION
  Report Type: 
  Country: None (occurrence: None)
  Receive Date: 20120308
  Receipt Date: 20110705
  Transmission Date: 20120608
  Serious: No
  Sender: FDA-Public Use
  Company Number: US-GLAXOSMITHKLINE-A0934892A

PATIENT
  Age: 65 Year
  Sex: Female

DRUGS (2)
  1. NICORETTE [Suspect]
  2. NICORETTE [Suspect]
     Indication: EX-TOBACCO USER
     Dates: start: 20110630, end: 20110701

REACTIONS (6)
  - EATING DISORDER [None]
  - TONGUE ULCERATION [None]
  - INTENTIONAL DRUG MISUSE [None]
  - GLOSSODYNIA [None]
  - DISCOMFORT [None]
  - NICOTINE DEPENDENCE [None]
